FAERS Safety Report 8888607 (Version 1)
Quarter: 2012Q4

REPORT INFORMATION
  Report Type: 
  Country: GB (occurrence: GB)
  Receive Date: 20121106
  Receipt Date: 20121106
  Transmission Date: 20130627
  Serious: Yes (Life-Threatening)
  Sender: FDA-Public Use
  Company Number: GB-TEVA-367084ISR

PATIENT
  Age: 69 Year

DRUGS (4)
  1. TRAZODONE [Suspect]
     Indication: DELIRIUM
     Dosage: At night
     Route: 048
     Dates: start: 20120913, end: 20120923
  2. TAZOCIN [Concomitant]
     Route: 042
     Dates: start: 20120903, end: 20120918
  3. OMEPRAZOLE [Concomitant]
     Dosage: In the morning
     Route: 042
     Dates: start: 20120918, end: 20120918
  4. CLARITHROMYCIN [Concomitant]
     Route: 042
     Dates: start: 20120904, end: 20120918

REACTIONS (2)
  - Agranulocytosis [Recovered/Resolved]
  - Neutropenia [Recovered/Resolved]
